FAERS Safety Report 4462147-3 (Version None)
Quarter: 2004Q3

REPORT INFORMATION
  Report Type: 
  Country: None (occurrence: None)
  Receive Date: 20040929
  Receipt Date: 20040707
  Transmission Date: 20050211
  Serious: Yes (Disabling)
  Sender: FDA-Public Use
  Company Number: ES-MERCK-0407ESP00022

PATIENT
  Age: 72 Year
  Sex: Female

DRUGS (5)
  1. ACETAMINOPHEN AND ASCORBIC ACID AND CODEINE PHOSPHATE [Suspect]
     Route: 048
     Dates: start: 20030101, end: 20030101
  2. FOSAMAX [Suspect]
     Indication: OSTEOPOROSIS
     Route: 048
     Dates: start: 20020101, end: 20030101
  3. AMOXICILLIN AND CLAVULANATE POTASSIUM [Suspect]
     Indication: COUGH
     Route: 065
     Dates: start: 20030101, end: 20030101
  4. AMOXICILLIN AND CLAVULANATE POTASSIUM [Suspect]
     Indication: PYREXIA
     Route: 065
     Dates: start: 20030101, end: 20030101
  5. CALCIUM PHOSPHATE, TRIBASIC AND CHOLECALCIFEROL [Concomitant]
     Indication: OSTEOPOROSIS
     Route: 048

REACTIONS (9)
  - ACQUIRED DIAPHRAGMATIC EVENTRATION [None]
  - ADVERSE EVENT [None]
  - ANAEMIA [None]
  - ANAL FISSURE [None]
  - CONSTIPATION [None]
  - COUGH [None]
  - DYSPNOEA [None]
  - FUNGAL SKIN INFECTION [None]
  - PYREXIA [None]
